FAERS Safety Report 5004050-6 (Version None)
Quarter: 2006Q2

REPORT INFORMATION
  Report Type: 
  Country: None (occurrence: None)
  Receive Date: 20060517
  Receipt Date: 20060509
  Transmission Date: 20061013
  Serious: Yes (Other)
  Sender: FDA-Public Use
  Company Number: US-JNJFOC-20060105159

PATIENT
  Sex: Female
  Weight: 84.82 kg

DRUGS (27)
  1. REMICADE [Suspect]
     Route: 042
  2. REMICADE [Suspect]
     Route: 042
  3. REMICADE [Suspect]
     Route: 042
  4. REMICADE [Suspect]
     Route: 042
  5. REMICADE [Suspect]
     Route: 042
  6. REMICADE [Suspect]
     Route: 042
  7. REMICADE [Suspect]
     Route: 042
  8. REMICADE [Suspect]
     Indication: CROHN'S DISEASE
     Route: 042
  9. NARCOTIC ANALGESICS [Concomitant]
     Indication: CROHN'S DISEASE
  10. METHOTREXATE [Concomitant]
     Indication: CROHN'S DISEASE
  11. AZATHIOPRINE [Concomitant]
  12. ACETAMINOPHEN [Concomitant]
  13. ACETAMINOPHEN [Concomitant]
  14. ACETAMINOPHEN [Concomitant]
  15. ACETAMINOPHEN [Concomitant]
  16. ACETAMINOPHEN [Concomitant]
  17. ACETAMINOPHEN [Concomitant]
  18. ACETAMINOPHEN [Concomitant]
  19. ACETAMINOPHEN [Concomitant]
  20. ANTIHISTAMINES [Concomitant]
  21. ANTIHISTAMINES [Concomitant]
  22. ANTIHISTAMINES [Concomitant]
  23. ANTIHISTAMINES [Concomitant]
  24. ANTIHISTAMINES [Concomitant]
  25. ANTIHISTAMINES [Concomitant]
  26. ANTIHISTAMINES [Concomitant]
  27. ANTIHISTAMINES [Concomitant]

REACTIONS (1)
  - SMALL CELL LUNG CANCER STAGE UNSPECIFIED [None]
